FAERS Safety Report 10751855 (Version 4)
Quarter: 2015Q3

REPORT INFORMATION
  Report Type: Spontaneous
  Country: IT (occurrence: IT)
  Receive Date: 20150130
  Receipt Date: 20150903
  Transmission Date: 20151125
  Serious: Yes (Hospitalization)
  Sender: FDA-Public Use
  Company Number: IT-PFIZER INC-2015018669

PATIENT
  Age: 53 Year
  Sex: Female

DRUGS (7)
  1. XANAX [Suspect]
     Active Substance: ALPRAZOLAM
     Dosage: 0.75 MG/ML A BOTTLE (20 ML, TOTAL)
     Route: 048
     Dates: start: 20130701, end: 20130701
  2. CIPRALEX [Suspect]
     Active Substance: ESCITALOPRAM OXALATE
     Dosage: UNK
     Route: 048
     Dates: start: 201006
  3. SEREUPIN [Suspect]
     Active Substance: PAROXETINE HYDROCHLORIDE
     Dosage: 280 MG, TOTAL
     Route: 048
     Dates: start: 20130701, end: 20130701
  4. CIPRALEX [Suspect]
     Active Substance: ESCITALOPRAM OXALATE
     Dosage: 280 MG, TOTAL
     Route: 048
     Dates: start: 20130701, end: 20130701
  5. NUROFEN [Suspect]
     Active Substance: IBUPROFEN
     Dosage: 12 TABLETS, TOTAL
     Route: 048
     Dates: start: 20130701, end: 20130701
  6. ENANTYUM [Suspect]
     Active Substance: DEXKETOPROFEN TROMETAMOL
     Dosage: 25 MG TABLETS,  10 TABLETS, TOTAL
     Route: 048
     Dates: start: 20130701, end: 20130701
  7. LEXOTAN [Suspect]
     Active Substance: BROMAZEPAM
     Dosage: 37.5 MG, TOTAL
     Route: 048
     Dates: start: 20130701, end: 20130701

REACTIONS (8)
  - Poisoning deliberate [Recovered/Resolved]
  - Intentional overdose [Recovered/Resolved]
  - Dyslalia [Recovered/Resolved]
  - Somnolence [Unknown]
  - Drug abuse [Recovered/Resolved]
  - Toxicity to various agents [Recovered/Resolved]
  - Suicide attempt [Recovered/Resolved]
  - Bradyphrenia [Recovered/Resolved]

NARRATIVE: CASE EVENT DATE: 20130701
